FAERS Safety Report 8534939 (Version 2)
Quarter: 2014Q4

REPORT INFORMATION
  Report Type: Spontaneous
  Country: US (occurrence: US)
  Receive Date: 20120427
  Receipt Date: 20141223
  Transmission Date: 20150529
  Serious: Yes (Hospitalization, Other)
  Sender: FDA-Public Use
  Company Number: US-ASTRAZENECA-2012SE26046

PATIENT
  Age: 72 Year
  Sex: Female
  Weight: 68 kg

DRUGS (12)
  1. VITAMIN E [Concomitant]
     Active Substance: .ALPHA.-TOCOPHEROL
     Dosage: DAILY
  2. VITAMIN B12 [Concomitant]
     Active Substance: CYANOCOBALAMIN
     Dosage: DAILY
  3. SELINIUM [Concomitant]
     Dosage: DAILY
  4. MAGNESIUM [Concomitant]
     Active Substance: MAGNESIUM
     Dosage: DAILY
  5. SYMBICORT [Suspect]
     Active Substance: BUDESONIDE\FORMOTEROL FUMARATE DIHYDRATE
     Indication: ASTHMA
     Dosage: 160/4.5MCG 2 PUFFS BID
     Route: 055
     Dates: start: 2010
  6. SYMBICORT [Suspect]
     Active Substance: BUDESONIDE\FORMOTEROL FUMARATE DIHYDRATE
     Indication: ASTHMA
     Dosage: 80/4.5MCG 1 PUFF DAILY
     Route: 055
  7. VITAMIN C [Concomitant]
     Active Substance: ASCORBIC ACID
     Dosage: DAILY
  8. VITAMIN A [Concomitant]
     Active Substance: VITAMIN A
  9. SYMBICORT [Suspect]
     Active Substance: BUDESONIDE\FORMOTEROL FUMARATE DIHYDRATE
     Indication: ASTHMA
     Dosage: 80/4.5MCG DAILY
     Route: 055
  10. MIKLTHISTLE [Concomitant]
     Dosage: DAILY
  11. CALCIUM [Concomitant]
     Active Substance: CALCIUM
     Dosage: DAILY
  12. VITAMIN K [Concomitant]
     Active Substance: PHYTONADIONE
     Dosage: DAILY

REACTIONS (19)
  - Visual impairment [Unknown]
  - Osteoporosis [Unknown]
  - Chest pain [Unknown]
  - Intentional product misuse [Not Recovered/Not Resolved]
  - Bone density decreased [Unknown]
  - Limb discomfort [Not Recovered/Not Resolved]
  - Hypophagia [Unknown]
  - Pain in extremity [Recovered/Resolved]
  - Candida infection [Not Recovered/Not Resolved]
  - Cholelithiasis [Unknown]
  - Urinary tract infection [Unknown]
  - Back pain [Not Recovered/Not Resolved]
  - Muscle strain [Unknown]
  - Syncope [Recovering/Resolving]
  - Gait disturbance [Not Recovered/Not Resolved]
  - Cataract [Unknown]
  - Glaucoma [Unknown]
  - Post procedural infection [Unknown]
  - Post procedural haemorrhage [Unknown]

NARRATIVE: CASE EVENT DATE: 2012
